FAERS Safety Report 25373530 (Version 1)
Quarter: 2025Q2

REPORT INFORMATION
  Report Type: Spontaneous
  Country: US (occurrence: US)
  Receive Date: 20250529
  Receipt Date: 20250529
  Transmission Date: 20250716
  Serious: Yes (Hospitalization)
  Sender: AUROBINDO
  Company Number: US-MLMSERVICE-20250502-PI488953-00145-2

PATIENT
  Age: 66 Year
  Sex: Male

DRUGS (3)
  1. DIPHENHYDRAMINE [Suspect]
     Active Substance: DIPHENHYDRAMINE
     Indication: Product used for unknown indication
     Route: 065
  2. QUININE SULFATE [Suspect]
     Active Substance: QUININE SULFATE
     Indication: Product used for unknown indication
     Route: 065
  3. FENTANYL [Suspect]
     Active Substance: FENTANYL
     Indication: Product used for unknown indication
     Route: 065

REACTIONS (10)
  - Somnolence [Unknown]
  - Miosis [Unknown]
  - Rhinorrhoea [Unknown]
  - Sinus bradycardia [Unknown]
  - Hypertension [Unknown]
  - Sedation complication [Unknown]
  - Mental status changes [Unknown]
  - Diastolic dysfunction [Unknown]
  - Overdose [Unknown]
  - Dizziness [Unknown]
